FAERS Safety Report 14465751 (Version 3)
Quarter: 2018Q2

REPORT INFORMATION
  Report Type: Spontaneous
  Country: FR (occurrence: FR)
  Receive Date: 20180131
  Receipt Date: 20180612
  Transmission Date: 20180711
  Serious: Yes (Other)
  Sender: FDA-Public Use
  Company Number: FR-MERCK KGAA-2041127

PATIENT
  Age: 58 Year
  Sex: Female

DRUGS (6)
  1. NOVOTHYROX [Suspect]
     Active Substance: LEVOTHYROXINE SODIUM
     Indication: BASEDOW^S DISEASE
     Dates: start: 201704
  2. TAREG [Concomitant]
     Active Substance: VALSARTAN
  3. BISOPROLOL [Concomitant]
     Active Substance: BISOPROLOL
  4. LEVOTHYROX NF [Suspect]
     Active Substance: LEVOTHYROXINE SODIUM
  5. NEOMERCAZOLE [Concomitant]
     Active Substance: CARBIMAZOLE
  6. ATORVASTATINE [Concomitant]
     Active Substance: ATORVASTATIN

REACTIONS (13)
  - Amnesia [None]
  - Facial paralysis [None]
  - Vertigo [None]
  - Anxiety [None]
  - Irritability [None]
  - Blood thyroid stimulating hormone decreased [None]
  - Visual impairment [None]
  - Asthenia [None]
  - Gastrointestinal disorder [None]
  - Glycosylated haemoglobin increased [None]
  - Blood pressure increased [None]
  - Confusional state [None]
  - Weight increased [None]

NARRATIVE: CASE EVENT DATE: 2017
